FAERS Safety Report 20258155 (Version 2)
Quarter: 2022Q4

REPORT INFORMATION
  Report Type: Spontaneous
  Country: DE (occurrence: DE)
  Receive Date: 20211230
  Receipt Date: 20221213
  Transmission Date: 20230112
  Serious: Yes (Hospitalization)
  Sender: FDA-Public Use
  Company Number: DE-ADRED-07501-01

PATIENT
  Age: 87 Year
  Sex: Male

DRUGS (10)
  1. ESCITALOPRAM [Suspect]
     Active Substance: ESCITALOPRAM OXALATE
     Indication: Product used for unknown indication
     Dosage: 6.39 MG, ONE MORNING PAUSED AS OF TODAY
     Route: 048
  2. BISOPROLOL [Suspect]
     Active Substance: BISOPROLOL
     Indication: Product used for unknown indication
     Dosage: 2.5 MG, 1-0-1-0
     Route: 048
  3. ATORVASTATIN [Concomitant]
     Active Substance: ATORVASTATIN
     Dosage: 21.65 MG, 0-0-1-0
     Route: 048
  4. PANTOPRAZOLE SODIUM [Concomitant]
     Active Substance: PANTOPRAZOLE SODIUM
     Dosage: 45.11 MG, 1-0-0-0
     Route: 048
  5. ALLOPURINOL [Concomitant]
     Active Substance: ALLOPURINOL
     Dosage: 100 MG, 1-0-0-0
     Route: 048
  6. TORSEMIDE [Concomitant]
     Active Substance: TORSEMIDE
     Dosage: 10 MG, 2-1-0-0
     Route: 048
  7. POTASSIUM CITRATE [Concomitant]
     Active Substance: POTASSIUM CITRATE
     Dosage: 2157.8 MG, 1-0-1-0
     Route: 048
  8. METAMIZOL [Concomitant]
     Active Substance: METAMIZOLE SODIUM
     Dosage: 500 MG, 1-1-1-0
     Route: 048
  9. PYRIDOXINE;THIAMINE;VITAMIN B12 NOS [Concomitant]
     Dosage: 100|50|500 MG, 1-0-0-0
     Route: 048
  10. ASPIRIN [Concomitant]
     Active Substance: ASPIRIN
     Dosage: 100 MG, 0-1-0-0
     Route: 048

REACTIONS (3)
  - Loss of consciousness [Unknown]
  - Depressed level of consciousness [Unknown]
  - Consciousness fluctuating [Unknown]
